FAERS Safety Report 22630773 (Version 1)
Quarter: 2023Q2

REPORT INFORMATION
  Report Type: Spontaneous
  Country: US (occurrence: None)
  Receive Date: 20230621
  Receipt Date: 20230621
  Transmission Date: 20230721
  Serious: Yes (Other)
  Sender: FDA-Public Use
  Company Number: None

PATIENT
  Age: 66 Year
  Sex: Female
  Weight: 99.79 kg

DRUGS (1)
  1. OZEMPIC [Suspect]
     Active Substance: SEMAGLUTIDE
     Dates: start: 20230313, end: 20230529

REACTIONS (6)
  - Headache [None]
  - Constipation [None]
  - Abdominal discomfort [None]
  - Nausea [None]
  - Pain [None]
  - Emotional disorder [None]

NARRATIVE: CASE EVENT DATE: 20230313
